FAERS Safety Report 8059626-9 (Version None)
Quarter: 2012Q1

REPORT INFORMATION
  Report Type: 
  Country: None (occurrence: None)
  Receive Date: 20120120
  Receipt Date: 20120109
  Transmission Date: 20120608
  Serious: Yes (Hospitalization, Other)
  Sender: FDA-Public Use
  Company Number: PHHY2012FR001552

PATIENT
  Sex: Male

DRUGS (9)
  1. RASILEZ [Suspect]
     Dosage: 1 DF, QD
     Route: 048
     Dates: start: 20110201, end: 20110518
  2. ATENOLOL [Concomitant]
  3. GLUCOPHAGE [Concomitant]
  4. LASIX [Concomitant]
  5. AMARYL [Concomitant]
  6. CRESTOR [Concomitant]
  7. ALDACTONE [Concomitant]
  8. EUPRESSYL [Concomitant]
  9. ESOMEPRAZOLE [Concomitant]

REACTIONS (7)
  - ATRIOVENTRICULAR BLOCK [None]
  - RENAL FAILURE ACUTE [None]
  - HYPERKALAEMIA [None]
  - SYNCOPE [None]
  - PRIMARY HYPERALDOSTERONISM [None]
  - HEART RATE IRREGULAR [None]
  - NEPHROPATHY [None]
